FAERS Safety Report 6885411-7 (Version None)
Quarter: 2010Q3

REPORT INFORMATION
  Report Type: 
  Country: None (occurrence: None)
  Receive Date: 20100729
  Receipt Date: 20080218
  Transmission Date: 20110219
  Serious: Yes (Other)
  Sender: FDA-Public Use
  Company Number: US-PFIZER INC-2007105041

PATIENT
  Sex: Female
  Weight: 54.545 kg

DRUGS (5)
  1. CELEBREX [Suspect]
     Indication: PAIN
     Dates: start: 20071213, end: 20071213
  2. CELEBREX [Suspect]
     Indication: INFLAMMATION
  3. CELEBREX [Suspect]
     Indication: RHEUMATOID ARTHRITIS
  4. TOPROL-XL [Concomitant]
  5. PREVACID [Concomitant]

REACTIONS (1)
  - ABDOMINAL PAIN [None]
